FAERS Safety Report 15736610 (Version 7)
Quarter: 2019Q2

REPORT INFORMATION
  Report Type: Report from Study
  Country: US (occurrence: US)
  Receive Date: 20181218
  Receipt Date: 20190521
  Transmission Date: 20190711
  Serious: Yes (Disabling, Other)
  Sender: FDA-Public Use
  Company Number: US-SA-2017SA255975

PATIENT
  Age: 31 Year
  Sex: Male

DRUGS (8)
  1. EFFEXOR [Concomitant]
     Active Substance: VENLAFAXINE HYDROCHLORIDE
     Indication: ANXIETY
     Dosage: 150 DF,QD
     Route: 065
     Dates: start: 2014
  2. AMPYRA [Concomitant]
     Active Substance: DALFAMPRIDINE
     Indication: GAIT DISTURBANCE
     Dosage: 10 MG,BID
     Route: 065
     Dates: start: 2012
  3. ZANAFLEX [Concomitant]
     Active Substance: TIZANIDINE HYDROCHLORIDE
     Indication: MUSCLE SPASTICITY
     Dosage: 4 MG,TID
     Route: 065
     Dates: start: 2014
  4. ROBAXIN [Concomitant]
     Active Substance: METHOCARBAMOL
     Dosage: 750 MG, TID
  5. ALEMTUZUMAB [Suspect]
     Active Substance: ALEMTUZUMAB
     Indication: MULTIPLE SCLEROSIS
     Dosage: 12 MG, QD
     Route: 041
     Dates: start: 20171206, end: 20171208
  6. NALTREXONE [Concomitant]
     Active Substance: NALTREXONE
     Indication: MULTIPLE SCLEROSIS
     Dosage: 4.5 MG,QD
     Route: 065
     Dates: start: 2016
  7. ALEMTUZUMAB [Suspect]
     Active Substance: ALEMTUZUMAB
     Dosage: 12 MG, QD
     Route: 041
     Dates: start: 20161114, end: 20161118
  8. BACLOFEN. [Concomitant]
     Active Substance: BACLOFEN
     Indication: MUSCLE SPASTICITY
     Dosage: 20 MG,UNK
     Route: 065
     Dates: start: 2008

REACTIONS (11)
  - Heart rate increased [Recovered/Resolved]
  - Fall [Recovered/Resolved]
  - Thyroxine increased [Not Recovered/Not Resolved]
  - Autoimmune thyroiditis [Unknown]
  - Basedow^s disease [Not Recovered/Not Resolved]
  - Limb discomfort [Recovered/Resolved]
  - Muscle atrophy [Recovered/Resolved]
  - Unevaluable event [Unknown]
  - Protein urine present [Not Recovered/Not Resolved]
  - Gait disturbance [Recovering/Resolving]
  - Blood thyroid stimulating hormone abnormal [Unknown]

NARRATIVE: CASE EVENT DATE: 20171206
